FAERS Safety Report 17787984 (Version 1)
Quarter: 2020Q2

REPORT INFORMATION
  Report Type: Spontaneous
  Country: FR (occurrence: FR)
  Receive Date: 20200514
  Receipt Date: 20200514
  Transmission Date: 20200714
  Serious: Yes (Hospitalization)
  Sender: FDA-Public Use
  Company Number: FR-ROCHE-2598794

PATIENT
  Age: 54 Year
  Sex: Male

DRUGS (2)
  1. VALIUM [Suspect]
     Active Substance: DIAZEPAM
     Indication: SUICIDE ATTEMPT
     Dosage: MOST RECENT DOSE PRIOR TO AE 02/DEC/2019
     Route: 048
     Dates: start: 20191202
  2. NOCTAMIDE [Suspect]
     Active Substance: LORMETAZEPAM
     Indication: SUICIDE ATTEMPT
     Dosage: MOST RECENT DOSE PRIOR TO AE 02/DEC/2019
     Route: 048
     Dates: start: 20191202

REACTIONS (1)
  - Somnolence [Recovered/Resolved]

NARRATIVE: CASE EVENT DATE: 20191202
